FAERS Safety Report 22802779 (Version 7)
Quarter: 2025Q3

REPORT INFORMATION
  Report Type: Spontaneous
  Country: US (occurrence: US)
  Receive Date: 20230809
  Receipt Date: 20250820
  Transmission Date: 20251021
  Serious: No
  Sender: PFIZER
  Company Number: US-PFIZER INC-PV202300121264

PATIENT
  Age: 12 Year
  Sex: Male

DRUGS (4)
  1. GENOTROPIN [Suspect]
     Active Substance: SOMATROPIN
     Dosage: 2.3 MG, DAILY (7 DAYS PER WEEK)
  2. GENOTROPIN [Suspect]
     Active Substance: SOMATROPIN
     Dates: start: 202307
  3. GENOTROPIN [Suspect]
     Active Substance: SOMATROPIN
     Dosage: 2.2 MG, ALTERNATE DAY (2.2 MG ALTERNATE WITH 2.4 MG DAILY)
  4. GENOTROPIN [Suspect]
     Active Substance: SOMATROPIN
     Dosage: 2.4 MG, ALTERNATE DAY (2.2 MG ALTERNATE WITH 2.4 MG DAILY)

REACTIONS (5)
  - Device physical property issue [Unknown]
  - Device use error [Unknown]
  - Device information output issue [Unknown]
  - Drug dose omission by device [Unknown]
  - Product prescribing error [Unknown]
